FAERS Safety Report 12461116 (Version 4)
Quarter: 2016Q3

REPORT INFORMATION
  Report Type: Spontaneous
  Country: JP (occurrence: JP)
  Receive Date: 20160613
  Receipt Date: 20160801
  Transmission Date: 20161109
  Serious: Yes (Hospitalization, Congenital Anomaly)
  Sender: FDA-Public Use
  Company Number: JP-009507513-1606JPN002574

PATIENT
  Age: 73 Year
  Sex: Female
  Weight: 46 kg

DRUGS (2)
  1. NU-LOTAN TABLETS 50MG [Suspect]
     Active Substance: LOSARTAN
     Indication: HYPERTENSION
     Dosage: 50 MG,THREE TIMES A DAY
     Route: 048
     Dates: start: 20160425, end: 20160523
  2. LANDEL [Concomitant]
     Active Substance: UNSPECIFIED INGREDIENT
     Indication: HYPERTENSION
     Dosage: 20 MG, BID
     Route: 048
     Dates: start: 20160425, end: 20160523

REACTIONS (3)
  - Hyponatraemia [Recovered/Resolved]
  - Prescribed overdose [Unknown]
  - Heat illness [Unknown]

NARRATIVE: CASE EVENT DATE: 20160425
